FAERS Safety Report 24423750 (Version 1)
Quarter: 2024Q4

REPORT INFORMATION
  Report Type: Spontaneous
  Country: US (occurrence: None)
  Receive Date: 20241010
  Receipt Date: 20241010
  Transmission Date: 20250114
  Serious: Yes (Hospitalization)
  Sender: Public
  Company Number: None

PATIENT
  Sex: Female

DRUGS (3)
  1. AMBRISENTAN [Suspect]
     Active Substance: AMBRISENTAN
     Indication: Pulmonary arterial hypertension
     Dosage: FREQUENCY : DAILY;?
     Route: 048
     Dates: start: 202006
  2. ADCIRCA [Concomitant]
  3. ORENITRAM ER [Concomitant]

REACTIONS (5)
  - Pneumonia [None]
  - Fatigue [None]
  - Peripheral swelling [None]
  - Joint swelling [None]
  - Peripheral swelling [None]
